FAERS Safety Report 21675869 (Version 2)
Quarter: 2022Q4

REPORT INFORMATION
  Report Type: Spontaneous
  Country: US (occurrence: US)
  Receive Date: 20221202
  Receipt Date: 20221208
  Transmission Date: 20230113
  Serious: Yes (Other)
  Sender: FDA-Public Use
  Company Number: US-TEVA-2022-US-2830394

PATIENT
  Age: 71 Year
  Sex: Female
  Weight: 55.3 kg

DRUGS (8)
  1. SUCRALFATE [Suspect]
     Active Substance: SUCRALFATE
     Indication: Oesophagitis
     Dosage: 3 GRAM DAILY;
     Route: 042
     Dates: start: 20221121
  2. SUCRALFATE [Suspect]
     Active Substance: SUCRALFATE
     Route: 065
  3. Gastrogirafin [Concomitant]
     Indication: X-ray with contrast
     Route: 065
  4. FLAGYL [Concomitant]
     Active Substance: METRONIDAZOLE\METRONIDAZOLE HYDROCHLORIDE
     Indication: Peritonitis
     Dosage: EVERY 8 HOURS
     Route: 042
  5. Vactam [Concomitant]
     Indication: Urinary tract infection
     Dosage: EVERY 8 HOURS
     Route: 065
  6. PEPCID [Concomitant]
     Active Substance: FAMOTIDINE
     Indication: Gastritis
  7. ROCEPHIN [Concomitant]
     Active Substance: CEFTRIAXONE SODIUM
     Indication: Haematological infection
     Route: 065
  8. ISOVUE [Concomitant]
     Active Substance: IOPAMIDOL
     Indication: X-ray with contrast
     Route: 065

REACTIONS (6)
  - Bradycardia [Not Recovered/Not Resolved]
  - Loss of consciousness [Not Recovered/Not Resolved]
  - Dysphagia [Unknown]
  - Product use complaint [Unknown]
  - Incorrect route of product administration [Unknown]
  - Off label use [Unknown]

NARRATIVE: CASE EVENT DATE: 20221121
